FAERS Safety Report 22094122 (Version 1)
Quarter: 2023Q1

REPORT INFORMATION
  Report Type: Report from Study
  Country: BR (occurrence: BR)
  Receive Date: 20230314
  Receipt Date: 20230314
  Transmission Date: 20230417
  Serious: Yes (Other)
  Sender: FDA-Public Use
  Company Number: BR-JNJFOC-20230326146

PATIENT
  Age: 41 Year
  Sex: Female
  Weight: 100 kg

DRUGS (2)
  1. SPRAVATO [Suspect]
     Active Substance: ESKETAMINE
     Indication: Major depression
     Dosage: 56 MG, 2 DEVICES?FREQUENCY ALSO REPORTED AS 1 TIME A WEEK
     Dates: start: 20220707
  2. SPRAVATO [Suspect]
     Active Substance: ESKETAMINE
     Indication: Suicidal ideation

REACTIONS (2)
  - Gastrooesophageal reflux disease [Unknown]
  - Pain [Unknown]
